FAERS Safety Report 7608010-8 (Version None)
Quarter: 2011Q3

REPORT INFORMATION
  Report Type: 
  Country: None (occurrence: None)
  Receive Date: 20110714
  Receipt Date: 20110711
  Transmission Date: 20111222
  Serious: No
  Sender: FDA-Public Use
  Company Number: US-PFIZER INC-2011157262

PATIENT
  Sex: Male

DRUGS (4)
  1. CELEBREX [Suspect]
     Indication: SPINAL COLUMN STENOSIS
     Dosage: UNK
  2. ARTHROTEC [Suspect]
     Indication: JOINT STABILISATION
  3. CELEBREX [Suspect]
     Indication: JOINT STABILISATION
  4. ARTHROTEC [Suspect]
     Indication: SPINAL COLUMN STENOSIS
     Dosage: UNK

REACTIONS (1)
  - OEDEMA PERIPHERAL [None]
